APPROVED DRUG PRODUCT: NALOXONE HYDROCHLORIDE
Active Ingredient: NALOXONE HYDROCHLORIDE
Strength: 0.4MG/ML
Dosage Form/Route: INJECTABLE;INJECTION
Application: A211286 | Product #001
Applicant: PH HEALTH LTD
Approved: Jan 17, 2020 | RLD: No | RS: No | Type: DISCN